FAERS Safety Report 21804048 (Version 1)
Quarter: 2023Q1

REPORT INFORMATION
  Report Type: Spontaneous
  Country: IT (occurrence: IT)
  Receive Date: 20230102
  Receipt Date: 20230102
  Transmission Date: 20230418
  Serious: Yes (Hospitalization)
  Sender: FDA-Public Use
  Company Number: None

PATIENT
  Age: 40 Year
  Sex: Male

DRUGS (7)
  1. QUETIAPINE [Suspect]
     Active Substance: QUETIAPINE
     Indication: Product used for unknown indication
     Dosage: 230 DOSAGE FORM (230 COMPRESSE DI QUETIAPINA 150 MG + 50 BLISTER DI CITALOPRAM.)
     Route: 048
     Dates: start: 20220823, end: 20220823
  2. CITALOPRAM [Suspect]
     Active Substance: CITALOPRAM HYDROBROMIDE
     Indication: Product used for unknown indication
     Dosage: UNK (230 COMPRESSE DI QUETIAPINA 150 MG + 50 BLISTER DI CITALOPRAM)
     Route: 065
     Dates: start: 20220823, end: 20220823
  3. BISOPROLOL FUMARATE [Concomitant]
     Active Substance: BISOPROLOL FUMARATE
     Indication: Product used for unknown indication
     Dosage: 1.25 MG (BISOPROLOLO 1,25 MG)
     Route: 048
  4. FLURAZEPAM MONOHYDROCHLORIDE [Concomitant]
     Active Substance: FLURAZEPAM MONOHYDROCHLORIDE
     Indication: Product used for unknown indication
     Dosage: 30 MG (FELISON 30 MG)
     Route: 048
  5. DULOXETINE [Concomitant]
     Active Substance: DULOXETINE
     Indication: Product used for unknown indication
     Dosage: 60 MG (DULOXETINA 60 MG)
     Route: 065
  6. LYRICA [Concomitant]
     Active Substance: PREGABALIN
     Indication: Product used for unknown indication
     Dosage: 75 MG (LYRICA 75 MG)
     Route: 048
  7. TAVOR [Concomitant]
     Indication: Product used for unknown indication
     Dosage: 2.5 MG (TAVOR 2,5 MG)
     Route: 048

REACTIONS (3)
  - Coma [Recovered/Resolved]
  - Intentional product misuse [Recovered/Resolved]
  - Bezoar [Recovered/Resolved]

NARRATIVE: CASE EVENT DATE: 20220823
